FAERS Safety Report 10005934 (Version 3)
Quarter: 2014Q2

REPORT INFORMATION
  Report Type: Spontaneous
  Country: RU (occurrence: RU)
  Receive Date: 20140313
  Receipt Date: 20140425
  Transmission Date: 20141212
  Serious: Yes (Other)
  Sender: FDA-Public Use
  Company Number: RU-009507513-1403RUS004133

PATIENT
  Age: 23 Year
  Sex: Female

DRUGS (1)
  1. NUVARING [Suspect]
     Indication: CONTRACEPTION
     Dosage: UNK
     Route: 067
     Dates: start: 201303, end: 20140307

REACTIONS (5)
  - Abortion induced [Unknown]
  - Metrorrhagia [Unknown]
  - Unintended pregnancy [Recovered/Resolved]
  - Nausea [Unknown]
  - Product quality issue [Unknown]
